FAERS Safety Report 4481225-6 (Version None)
Quarter: 2004Q4

REPORT INFORMATION
  Report Type: 
  Country: None (occurrence: None)
  Receive Date: 20040923
  Receipt Date: 20040623
  Transmission Date: 20050328
  Serious: No
  Sender: FDA-Public Use
  Company Number: USA040157396

PATIENT
  Age: 76 Year
  Sex: Female
  Weight: 51 kg

DRUGS (4)
  1. FORTEO [Suspect]
     Indication: OSTEOPOROSIS
     Dosage: 20 UG DAY
     Dates: start: 20030121
  2. REMERON [Concomitant]
  3. PREMARIN [Concomitant]
  4. CITRACAL (CALCIUM CITRATE) [Concomitant]

REACTIONS (6)
  - DIARRHOEA [None]
  - DIZZINESS [None]
  - DYSCHEZIA [None]
  - FEELING ABNORMAL [None]
  - INJECTION SITE HAEMORRHAGE [None]
  - STOMACH DISCOMFORT [None]
